FAERS Safety Report 24873280 (Version 1)
Quarter: 2025Q1

REPORT INFORMATION
  Report Type: Report from Study
  Country: CA (occurrence: CA)
  Receive Date: 20250122
  Receipt Date: 20250122
  Transmission Date: 20250409
  Serious: Yes (Other)
  Sender: UCB
  Company Number: CA-UCBSA-2025003560

PATIENT

DRUGS (1)
  1. BIMEKIZUMAB [Suspect]
     Active Substance: BIMEKIZUMAB
     Indication: Psoriasis

REACTIONS (5)
  - Inflammatory bowel disease [Unknown]
  - Anxiety [Unknown]
  - Candida infection [Unknown]
  - Folliculitis [Unknown]
  - Drug ineffective [Unknown]
